FAERS Safety Report 17262311 (Version 1)
Quarter: 2019Q4

REPORT INFORMATION
  Report Type: Spontaneous
  Country: US (occurrence: US)
  Receive Date: 20191218
  Receipt Date: 20191218
  Transmission Date: 20200122
  Serious: Yes (Hospitalization)
  Sender: FDA-Public Use
  Company Number: None

PATIENT
  Age: 20 Year
  Sex: Female

DRUGS (6)
  1. URSODIOL. [Concomitant]
     Active Substance: URSODIOL
  2. SODIUM CHL [Concomitant]
  3. SYMBICORT [Suspect]
     Active Substance: BUDESONIDE\FORMOTEROL FUMARATE DIHYDRATE
     Indication: CYSTIC FIBROSIS
     Dates: start: 20150327
  4. MONTELUKAST [Concomitant]
     Active Substance: MONTELUKAST SODIUM
  5. RANITIDINE. [Concomitant]
     Active Substance: RANITIDINE
  6. ALBUTEROL SUL HFA 90MCG INH [Suspect]
     Active Substance: ALBUTEROL SULFATE
     Dosage: 2 PUFFS 4-6 NTIMES DAILY VY MOUTH-INHALATION
     Route: 048
     Dates: start: 20190614

REACTIONS (1)
  - Pneumonia [None]

NARRATIVE: CASE EVENT DATE: 20191111
